FAERS Safety Report 17975797 (Version 2)
Quarter: 2020Q3

REPORT INFORMATION
  Report Type: Spontaneous
  Country: JP (occurrence: JP)
  Receive Date: 20200702
  Receipt Date: 20200828
  Transmission Date: 20201103
  Serious: Yes (Hospitalization)
  Sender: FDA-Public Use
  Company Number: JP-EXELIXIS-CABO-20031017

PATIENT
  Age: 83 Year
  Sex: Male

DRUGS (1)
  1. CABOMETYX [Suspect]
     Active Substance: CABOZANTINIB S-MALATE
     Indication: RENAL CELL CARCINOMA
     Dosage: 40 MILLIGRAM
     Route: 048
     Dates: start: 20200602, end: 20200623

REACTIONS (5)
  - Enanthema [Unknown]
  - Rash [Recovered/Resolved]
  - Liver disorder [Recovered/Resolved]
  - Renal disorder [Unknown]
  - Blood pressure decreased [Recovered/Resolved]

NARRATIVE: CASE EVENT DATE: 20200623
